FAERS Safety Report 7674917-9 (Version None)
Quarter: 2011Q3

REPORT INFORMATION
  Report Type: 
  Country: None (occurrence: None)
  Receive Date: 20110810
  Receipt Date: 20110728
  Transmission Date: 20111222
  Serious: Yes (Hospitalization)
  Sender: FDA-Public Use
  Company Number: DE-ELI_LILLY_AND_COMPANY-DE201107007510

PATIENT
  Sex: Female

DRUGS (5)
  1. ZYPREXA [Suspect]
     Indication: PSYCHOTIC DISORDER
     Dosage: 15 MG, UNK
     Route: 048
  2. ZYPREXA [Suspect]
     Dosage: 7.5 MG, UNK
     Route: 048
  3. INVEGA [Concomitant]
     Indication: PSYCHOTIC DISORDER
  4. MIRTAZAPINE [Concomitant]
  5. PERAZINE [Concomitant]

REACTIONS (3)
  - PSYCHOTIC DISORDER [None]
  - INCREASED APPETITE [None]
  - WEIGHT INCREASED [None]
